FAERS Safety Report 13441083 (Version 1)
Quarter: 2017Q2

REPORT INFORMATION
  Report Type: Other
  Country: GB (occurrence: TR)
  Receive Date: 20170413
  Receipt Date: 20170413
  Transmission Date: 20170830
  Serious: Yes (Hospitalization, Other)
  Sender: FDA-Public Use
  Company Number: TR-INTERNATIONAL MEDICATION SYSTEMS, LIMITED-1065371

PATIENT
  Age: 22 Year
  Sex: Male

DRUGS (3)
  1. EPINEPHRINE. [Suspect]
     Active Substance: EPINEPHRINE
     Indication: LARYNGEAL OEDEMA
     Route: 030
  2. PREDNISOLONE. [Concomitant]
     Active Substance: PREDNISOLONE
  3. PHENIRAMINE MALEATE [Concomitant]
     Active Substance: PHENIRAMINE MALEATE
     Route: 042

REACTIONS (1)
  - Myocardial ischaemia [Unknown]
